FAERS Safety Report 5645305-1 (Version None)
Quarter: 2008Q1

REPORT INFORMATION
  Report Type: 
  Country: None (occurrence: None)
  Receive Date: 20080229
  Receipt Date: 20080225
  Transmission Date: 20080703
  Serious: Yes (Disabling)
  Sender: FDA-Public Use
  Company Number: A0711635A

PATIENT
  Age: 58 Year
  Sex: Male

DRUGS (11)
  1. LAMICTAL [Suspect]
     Indication: BIPOLAR DISORDER
     Dosage: 100MG AT NIGHT
     Route: 048
     Dates: start: 20080101
  2. KLONOPIN [Concomitant]
  3. MAPROTILINE [Concomitant]
  4. WELLBUTRIN XL [Concomitant]
  5. SYNTHROID [Concomitant]
  6. ASPIRIN [Concomitant]
  7. LOPID [Concomitant]
  8. MYSOLINE [Concomitant]
  9. SEROQUEL [Concomitant]
  10. ESKALITH [Concomitant]
  11. INSULIN [Concomitant]

REACTIONS (4)
  - BLOOD GLUCOSE INCREASED [None]
  - COGNITIVE DISORDER [None]
  - DIZZINESS [None]
  - SOMNOLENCE [None]
